FAERS Safety Report 7963658-6 (Version None)
Quarter: 2011Q4

REPORT INFORMATION
  Report Type: 
  Country: None (occurrence: None)
  Receive Date: 20111208
  Receipt Date: 20111102
  Transmission Date: 20120403
  Serious: No
  Sender: FDA-Public Use
  Company Number: US-BAYER-2011-107011

PATIENT
  Age: 75 Year
  Sex: Female
  Weight: 77 kg

DRUGS (6)
  1. VITAMIN D [Concomitant]
  2. ACETYLSALICYLIC ACID SRT [Concomitant]
  3. VITAMIN B-12 [Concomitant]
  4. ALEVE (CAPLET) [Suspect]
     Dosage: 1 DF, BID
     Route: 048
     Dates: start: 20111019
  5. VITAMIN E [Concomitant]
  6. CALCIUM CARBONATE [Concomitant]

REACTIONS (1)
  - INSOMNIA [None]
